FAERS Safety Report 5595575-3 (Version None)
Quarter: 2008Q1

REPORT INFORMATION
  Report Type: 
  Country: None (occurrence: None)
  Receive Date: 20080118
  Receipt Date: 20041027
  Transmission Date: 20080703
  Serious: Yes (Other)
  Sender: FDA-Public Use
  Company Number: US-AVENTIS-199912395HMRI

PATIENT
  Sex: Female
  Weight: 65 kg

DRUGS (25)
  1. ARAVA [Suspect]
     Indication: RHEUMATOID ARTHRITIS
  2. ARAVA [Suspect]
     Route: 048
     Dates: start: 19981207, end: 19990312
  3. VICODIN [Concomitant]
     Indication: PAIN
  4. TRAZODONE HCL [Concomitant]
  5. PRILOSEC                           /00661201/ [Concomitant]
  6. NEURONTIN [Concomitant]
  7. HUMULIN R [Concomitant]
     Route: 058
  8. HUMULIN R [Concomitant]
     Route: 058
  9. PREDNISONE [Concomitant]
  10. AMITRIPTYLINE HCL [Concomitant]
     Indication: PAIN
  11. ATENOLOL [Concomitant]
     Indication: HYPERTENSION
  12. GOLD INJECTION [Concomitant]
     Dosage: DOSE: UNK
  13. PENICILLAMINE [Concomitant]
     Dosage: DOSE: UNK
  14. PROCARDIA [Concomitant]
     Dosage: DOSE: UNK
  15. CEPHALEXIN [Concomitant]
     Dosage: DOSE: UNK
  16. CIPRO [Concomitant]
     Dosage: DOSE: UNK
  17. GLYBURIDE [Concomitant]
     Dosage: DOSE: UNK
  18. HUMULIN U [Concomitant]
     Dosage: DOSE: UNK
  19. HUMULIN N [Concomitant]
     Dosage: DOSE: UNK
  20. VITAMINS [Concomitant]
     Dosage: DOSE: UNK
  21. METAMUCIL                          /00091301/ [Concomitant]
     Dosage: DOSE: UNK
  22. ULTRAM [Concomitant]
  23. DARVOCET-N 100 [Concomitant]
     Dosage: DOSE: ONE
  24. REGLAN                             /00041901/ [Concomitant]
  25. TENORMIN [Concomitant]

REACTIONS (24)
  - ABDOMINAL DISCOMFORT [None]
  - ALANINE AMINOTRANSFERASE INCREASED [None]
  - ANAEMIA [None]
  - ANOREXIA [None]
  - ASPARTATE AMINOTRANSFERASE INCREASED [None]
  - ASTHENIA [None]
  - BLOOD ALKALINE PHOSPHATASE INCREASED [None]
  - BLOOD BILIRUBIN INCREASED [None]
  - CHOLESTASIS [None]
  - CHOLURIA [None]
  - CHROMATURIA [None]
  - DYSARTHRIA [None]
  - DYSPHAGIA [None]
  - FAECES DISCOLOURED [None]
  - FATIGUE [None]
  - FEELING ABNORMAL [None]
  - GAMMA-GLUTAMYLTRANSFERASE INCREASED [None]
  - JAUNDICE [None]
  - NAUSEA [None]
  - OCULAR ICTERUS [None]
  - OESOPHAGEAL CANDIDIASIS [None]
  - OSTEOMYELITIS [None]
  - PRURITUS [None]
  - WEIGHT DECREASED [None]
